FAERS Safety Report 6818694-X (Version None)
Quarter: 2010Q3

REPORT INFORMATION
  Report Type: 
  Country: None (occurrence: None)
  Receive Date: 20100706
  Receipt Date: 20100622
  Transmission Date: 20110219
  Serious: Yes (Death, Hospitalization, Other)
  Sender: FDA-Public Use
  Company Number: NO-ELI_LILLY_AND_COMPANY-NO201003004822

PATIENT
  Age: 42 Year
  Sex: Female

DRUGS (9)
  1. FLUOXETINE HCL [Suspect]
     Dosage: 40 MG, DAILY (1/D)
     Route: 065
  2. FLUOXETINE HCL [Suspect]
     Dosage: 800 MG, (40 OF 20MG TABLETS)
     Route: 065
  3. FLUOXETINE HCL [Suspect]
     Dosage: UNK, UNKNOWN
     Route: 065
  4. SERTINDOLE [Concomitant]
     Dosage: 16 MG, DAILY (1/D)
     Route: 065
  5. SERTINDOLE [Concomitant]
     Dosage: 1792 MG, 112 OF 16MG
     Route: 065
  6. SERTINDOLE [Concomitant]
     Dosage: UNK, UNKNOWN
     Route: 065
  7. LITHIUM CARBONATE [Concomitant]
     Indication: SCHIZOAFFECTIVE DISORDER
     Dosage: 83 MG, DAILY (1/D)
     Route: 065
  8. LITHIUM CARBONATE [Concomitant]
     Dosage: UNK, UNKNOWN
     Route: 065
  9. ZOPICLONE [Concomitant]
     Dosage: UNK, UNKNOWN
     Route: 048

REACTIONS (7)
  - DEATH [None]
  - DRUG INTERACTION [None]
  - INTENTIONAL OVERDOSE [None]
  - LEUKOCYTOSIS [None]
  - LUNG DISORDER [None]
  - SOMNOLENCE [None]
  - SUICIDE ATTEMPT [None]
